FAERS Safety Report 10266999 (Version 2)
Quarter: 2015Q2

REPORT INFORMATION
  Report Type: Spontaneous
  Country: MX (occurrence: MX)
  Receive Date: 20140630
  Receipt Date: 20150626
  Transmission Date: 20150821
  Serious: Yes (Death, Other)
  Sender: FDA-Public Use
  Company Number: MX-UCBSA-2014003605

PATIENT
  Age: 2 Year
  Sex: Female
  Weight: 13 kg

DRUGS (7)
  1. VIMPAT [Suspect]
     Active Substance: LACOSAMIDE
     Indication: EPILEPSY
     Dosage: 50 MG, 2X/DAY (BID)
     Route: 048
     Dates: start: 20120709, end: 20140606
  2. GABAPENTIN ^PCD^ [Concomitant]
     Dosage: 300 MG 6 TABLETS DAILY
  3. CLOBAZAM [Concomitant]
     Active Substance: CLOBAZAM
     Dosage: 1 TABLET DAILY
  4. LEVETIRACETAM. [Concomitant]
     Active Substance: LEVETIRACETAM
     Dosage: STRENGTH: 500 MG; 3/4 TABLET EVERY 8 HOURS
  5. LEVOCARNITIN [Concomitant]
     Dosage: UNK, 2X/DAY (BID)
  6. PRAVASTATIN ACTAVIS [Concomitant]
     Dosage: 10MG (1/2 TABLET EVERY 24 HOURS)
  7. LEVOTIROXIN [Concomitant]
     Dosage: ? TABLET ONCE A DAY

REACTIONS (2)
  - Septic shock [Fatal]
  - Myocardial infarction [Fatal]

NARRATIVE: CASE EVENT DATE: 20140604
